FAERS Safety Report 7921766-X (Version None)
Quarter: 2011Q4

REPORT INFORMATION
  Report Type: 
  Country: None (occurrence: None)
  Receive Date: 20111117
  Receipt Date: 20111012
  Transmission Date: 20120403
  Serious: Yes (Hospitalization)
  Sender: FDA-Public Use
  Company Number: JP-GLAXOSMITHKLINE-B0755306A

PATIENT
  Sex: Male

DRUGS (17)
  1. LAMICTAL [Suspect]
     Dosage: 50MG PER DAY
     Route: 048
     Dates: start: 20110907, end: 20110914
  2. VALPROATE SODIUM [Concomitant]
     Dosage: 600MG PER DAY
     Route: 048
     Dates: start: 20101227
  3. ROHYPNOL [Concomitant]
     Dosage: 1MG PER DAY
     Route: 048
     Dates: start: 20110810
  4. SENIRAN [Concomitant]
     Dosage: 18MG PER DAY
     Route: 048
     Dates: start: 20101227
  5. LAMICTAL [Suspect]
     Indication: BIPOLAR DISORDER
     Dosage: 25MG TWICE PER DAY
     Route: 048
     Dates: start: 20110810, end: 20110824
  6. VALPROATE SODIUM [Concomitant]
     Dosage: 600MG PER DAY
     Route: 048
     Dates: start: 20110721, end: 20110824
  7. SENIRAN [Concomitant]
     Dosage: 4MG PER DAY
     Route: 048
     Dates: start: 20110721, end: 20110809
  8. SENIRAN [Concomitant]
     Dosage: 6MG PER DAY
     Route: 048
     Dates: start: 20110810
  9. LAMICTAL [Suspect]
     Dosage: 25MG PER DAY
     Route: 048
     Dates: start: 20110825, end: 20110906
  10. LAMICTAL [Suspect]
     Dosage: 100MG PER DAY
     Route: 048
     Dates: start: 20110915, end: 20110921
  11. LAMICTAL [Suspect]
     Dosage: 200MG PER DAY
     Route: 048
     Dates: start: 20110922, end: 20111003
  12. LEVOTHYROXINE SODIUM [Concomitant]
     Dosage: 25MG PER DAY
     Route: 048
     Dates: start: 20110821, end: 20110921
  13. DEPAS [Concomitant]
     Route: 048
     Dates: start: 20110608
  14. SEROQUEL [Concomitant]
     Dosage: 12.5MG PER DAY
     Route: 048
     Dates: start: 20110915
  15. VALPROATE SODIUM [Concomitant]
     Dosage: 200MG PER DAY
     Route: 048
     Dates: start: 20110907, end: 20110914
  16. VALPROATE SODIUM [Concomitant]
     Dosage: 200MG PER DAY
     Route: 048
     Dates: start: 20110907, end: 20110914
  17. ZYPREXA [Concomitant]
     Dosage: 2.5MG PER DAY
     Route: 048
     Dates: start: 20110907, end: 20110914

REACTIONS (2)
  - FLUID INTAKE REDUCED [None]
  - NAUSEA [None]
